FAERS Safety Report 23112937 (Version 2)
Quarter: 2023Q4

REPORT INFORMATION
  Report Type: Spontaneous
  Country: US (occurrence: US)
  Receive Date: 20231027
  Receipt Date: 20231207
  Transmission Date: 20240110
  Serious: Yes (Other)
  Sender: FDA-Public Use
  Company Number: US-NOVOPROD-1130306

PATIENT
  Sex: Male

DRUGS (1)
  1. OZEMPIC [Suspect]
     Active Substance: SEMAGLUTIDE
     Indication: Type 2 diabetes mellitus
     Dosage: 2 MG, QW
     Route: 058

REACTIONS (3)
  - Acute kidney injury [Recovered/Resolved]
  - Presyncope [Recovered/Resolved]
  - Blood creatinine decreased [Recovered/Resolved]

NARRATIVE: CASE EVENT DATE: 20230804
